FAERS Safety Report 14897485 (Version 1)
Quarter: 2018Q2

REPORT INFORMATION
  Report Type: Spontaneous
  Country: FR (occurrence: FR)
  Receive Date: 20180515
  Receipt Date: 20180515
  Transmission Date: 20180711
  Serious: Yes (Hospitalization)
  Sender: FDA-Public Use
  Company Number: FR-TEVA-2018-FR-892799

PATIENT
  Age: 19 Year
  Sex: Female

DRUGS (5)
  1. AMIKACINE [Suspect]
     Active Substance: AMIKACIN
     Indication: PYELONEPHRITIS
     Route: 042
     Dates: start: 20170705, end: 20170705
  2. PARACETAMOL [Suspect]
     Active Substance: ACETAMINOPHEN
     Indication: PAIN
     Dosage: 4 TO 6 G/D
     Route: 048
     Dates: start: 20170629, end: 20170707
  3. PROFENID [Suspect]
     Active Substance: KETOPROFEN
     Indication: PRODUCT USED FOR UNKNOWN INDICATION
     Dosage: NOT DETERMINED
     Route: 048
     Dates: start: 20170705, end: 20170705
  4. AMOXICILLIN. [Suspect]
     Active Substance: AMOXICILLIN
     Indication: PYELONEPHRITIS
     Dosage: 3 GRAM DAILY; 3G/J
     Route: 042
     Dates: start: 20170629, end: 20170705
  5. ROCEPHINE [Suspect]
     Active Substance: CEFTRIAXONE SODIUM
     Indication: PYELONEPHRITIS
     Dosage: 2 GRAM DAILY; 2G/J
     Route: 042
     Dates: start: 20170705, end: 20170707

REACTIONS (2)
  - Nephritis [Recovered/Resolved]
  - Hepatitis [Recovered/Resolved]

NARRATIVE: CASE EVENT DATE: 20170629
